FAERS Safety Report 8199232-9 (Version None)
Quarter: 2012Q1

REPORT INFORMATION
  Report Type: 
  Country: None (occurrence: None)
  Receive Date: 20120309
  Receipt Date: 20120229
  Transmission Date: 20120608
  Serious: Yes (Hospitalization, Other)
  Sender: FDA-Public Use
  Company Number: US-ELI_LILLY_AND_COMPANY-US201203000354

PATIENT
  Age: 55 Year
  Sex: Female

DRUGS (5)
  1. HUMULIN R [Suspect]
     Dosage: 45 U, EACH MORNING
  2. HUMULIN R [Suspect]
     Dosage: 30 U, EACH EVENING
  3. HUMULIN R [Suspect]
     Indication: DIABETES MELLITUS
     Dosage: 95 U, BID
     Dates: start: 20110601
  4. GLUCOPHAGE [Concomitant]
     Dosage: 500 MG, BID
  5. GLUCOTROL [Concomitant]
     Dosage: 10 MG, BID

REACTIONS (14)
  - SENSORY LOSS [None]
  - BLOOD GLUCOSE INCREASED [None]
  - JOINT SWELLING [None]
  - ERYTHEMA [None]
  - INAPPROPRIATE SCHEDULE OF DRUG ADMINISTRATION [None]
  - FALL [None]
  - ARTHROPATHY [None]
  - BLOOD GLUCOSE FLUCTUATION [None]
  - BLOOD GLUCOSE DECREASED [None]
  - VISION BLURRED [None]
  - INCORRECT STORAGE OF DRUG [None]
  - FEELING ABNORMAL [None]
  - WRIST FRACTURE [None]
  - UPPER LIMB FRACTURE [None]
